FAERS Safety Report 5735385-7 (Version None)
Quarter: 2008Q2

REPORT INFORMATION
  Report Type: 
  Country: None (occurrence: None)
  Receive Date: 20080508
  Receipt Date: 20080508
  Transmission Date: 20081010
  Serious: Yes (Other)
  Sender: FDA-Public Use
  Company Number: None

PATIENT
  Age: 44 Year
  Sex: Female
  Weight: 99.7913 kg

DRUGS (2)
  1. JANUMET [Suspect]
     Indication: DIABETES MELLITUS
     Dosage: JANUMET 2 TIMES A DAY PO
     Route: 048
     Dates: start: 20080321, end: 20080420
  2. METFORMIN HCL [Concomitant]

REACTIONS (2)
  - PRURITUS [None]
  - RASH GENERALISED [None]
